FAERS Safety Report 4534288-3 (Version None)
Quarter: 2004Q4

REPORT INFORMATION
  Report Type: 
  Country: None (occurrence: None)
  Receive Date: 20041214
  Receipt Date: 20040820
  Transmission Date: 20050328
  Serious: No
  Sender: FDA-Public Use
  Company Number: 2004230829US

PATIENT
  Age: 73 Year
  Sex: Female
  Weight: 68.9 kg

DRUGS (4)
  1. BEXTRA [Suspect]
     Indication: ARTHRITIS
     Dosage: 10 MG, QD, ORAL
     Route: 048
     Dates: start: 20040819
  2. XANAX [Suspect]
     Indication: ANXIETY
     Dosage: SEE IMAGE
     Route: 048
     Dates: start: 19900101
  3. XANAX [Suspect]
     Indication: ANXIETY
     Dosage: SEE IMAGE
     Route: 048
     Dates: start: 20040801
  4. CORTISONE (CORTISONE) [Suspect]
     Indication: ARTHRITIS
     Dates: start: 20040819

REACTIONS (4)
  - ANXIETY [None]
  - DRUG INTERACTION [None]
  - HYPERHIDROSIS [None]
  - INSOMNIA [None]
